FAERS Safety Report 13119366 (Version 1)
Quarter: 2017Q1

REPORT INFORMATION
  Report Type: Report from Study
  Country: US (occurrence: US)
  Receive Date: 20170116
  Receipt Date: 20170116
  Transmission Date: 20170428
  Serious: Yes (Other)
  Sender: FDA-Public Use
  Company Number: US-BAUSCH-BL-2017-001041

PATIENT
  Age: 52 Year
  Sex: Male

DRUGS (1)
  1. XENAZINE [Suspect]
     Active Substance: TETRABENAZINE
     Indication: HUNTINGTON^S DISEASE
     Route: 048
     Dates: start: 20120703

REACTIONS (5)
  - Haemorrhage [Unknown]
  - Drug dose omission [Unknown]
  - Fall [Unknown]
  - Head injury [Unknown]
  - Infection [Unknown]

NARRATIVE: CASE EVENT DATE: 201701
